FAERS Safety Report 13914301 (Version 1)
Quarter: 2017Q3

REPORT INFORMATION
  Report Type: Spontaneous
  Country: US (occurrence: US)
  Receive Date: 20170828
  Receipt Date: 20170828
  Transmission Date: 20171127
  Serious: No
  Sender: FDA-Public Use
  Company Number: US-ROCHE-1140065

PATIENT
  Sex: Male
  Weight: 15.9 kg

DRUGS (8)
  1. SULFATRIM [Concomitant]
     Active Substance: SULFAMETHOXAZOLE\TRIMETHOPRIM
     Route: 048
  2. NUTROPIN AQ [Suspect]
     Active Substance: SOMATROPIN
     Indication: CHRONIC KIDNEY DISEASE
     Dosage: OR 0.26 CC
     Route: 058
  3. SODIUM BICARBONATE. [Concomitant]
     Active Substance: SODIUM BICARBONATE
     Route: 048
  4. EPOGEN [Concomitant]
     Active Substance: ERYTHROPOIETIN
     Route: 065
  5. CANOLA OIL [Concomitant]
     Active Substance: CANOLA OIL
  6. IRON [Concomitant]
     Active Substance: IRON
  7. ROCALTROL [Concomitant]
     Active Substance: CALCITRIOL
     Route: 048
  8. CALCIUM CARBONATE. [Concomitant]
     Active Substance: CALCIUM CARBONATE
     Dosage: 1250 MG PER 5 ML
     Route: 048

REACTIONS (7)
  - Pyrexia [Unknown]
  - Polyuria [Unknown]
  - Otitis media [Unknown]
  - Urinary tract infection [Unknown]
  - Polydipsia [Unknown]
  - Respiratory disorder [Unknown]
  - Nasal congestion [Unknown]
